FAERS Safety Report 10524448 (Version 4)
Quarter: 2014Q4

REPORT INFORMATION
  Report Type: Spontaneous
  Country: US (occurrence: None)
  Receive Date: 20141015
  Receipt Date: 20141124
  Transmission Date: 20150528
  Serious: Yes (Hospitalization, Other)
  Sender: FDA-Public Use
  Company Number: ADR-2014-01898

PATIENT
  Age: 62 Year
  Sex: Female

DRUGS (12)
  1. CLONAZEPAM. [Suspect]
     Active Substance: CLONAZEPAM
  2. FOLIC ACID. [Suspect]
     Active Substance: FOLIC ACID
  3. VITAMIN B12 [Suspect]
     Active Substance: CYANOCOBALAMIN
  4. WARFARIN [Suspect]
     Active Substance: WARFARIN
  5. BACLOFEN. [Suspect]
     Active Substance: BACLOFEN
     Indication: MUSCLE SPASTICITY
  6. BUSPAR [Suspect]
     Active Substance: BUSPIRONE HYDROCHLORIDE
  7. PROZAC [Suspect]
     Active Substance: FLUOXETINE HYDROCHLORIDE
  8. PROVIGIL [Suspect]
     Active Substance: MODAFINIL
  9. POTASSIUM CHLORIDE. [Suspect]
     Active Substance: POTASSIUM CHLORIDE
  10. ORAL MEDICATIONS [Suspect]
     Active Substance: UNSPECIFIED INGREDIENT
  11. TESTOSTERONE. [Suspect]
     Active Substance: TESTOSTERONE
  12. ABILIFY [Suspect]
     Active Substance: ARIPIPRAZOLE

REACTIONS (7)
  - Device power source issue [None]
  - Multiple sclerosis [None]
  - No therapeutic response [None]
  - Cervical vertebral fracture [None]
  - Device malfunction [None]
  - Muscle spasticity [None]
  - Injury [None]
